FAERS Safety Report 6405972-1 (Version None)
Quarter: 2009Q4

REPORT INFORMATION
  Report Type: 
  Country: None (occurrence: None)
  Receive Date: 20091016
  Receipt Date: 20091016
  Transmission Date: 20100525
  Serious: Yes (Other)
  Sender: FDA-Public Use
  Company Number: None

PATIENT
  Sex: Female
  Weight: 63.6 kg

DRUGS (2)
  1. LEVAQUIN [Suspect]
     Indication: KIDNEY INFECTION
     Dosage: 250 MG 1 X DAY ORAL
     Route: 048
     Dates: start: 20090922, end: 20091007
  2. LEVAQUIN [Suspect]
     Indication: URINARY TRACT INFECTION
     Dosage: 250 MG 1 X DAY ORAL
     Route: 048
     Dates: start: 20090922, end: 20091007

REACTIONS (2)
  - ACTIVITIES OF DAILY LIVING IMPAIRED [None]
  - TENDON RUPTURE [None]
